FAERS Safety Report 16817845 (Version 1)
Quarter: 2019Q3

REPORT INFORMATION
  Report Type: Spontaneous
  Country: US (occurrence: US)
  Receive Date: 20190917
  Receipt Date: 20190917
  Transmission Date: 20191005
  Serious: No
  Sender: FDA-Public Use
  Company Number: US-AMGEN-USASP2019150950

PATIENT
  Age: 71 Year
  Sex: Female

DRUGS (2)
  1. EVENITY [Suspect]
     Active Substance: ROMOSOZUMAB-AQQG
     Indication: ANKLE FRACTURE
  2. EVENITY [Suspect]
     Active Substance: ROMOSOZUMAB-AQQG
     Indication: SPINAL FRACTURE
     Dosage: UNK
     Route: 065
     Dates: start: 2019

REACTIONS (4)
  - Peripheral vascular disorder [Unknown]
  - Fatigue [Unknown]
  - Libido decreased [Unknown]
  - Mood swings [Unknown]

NARRATIVE: CASE EVENT DATE: 2019
